FAERS Safety Report 6683464-2 (Version None)
Quarter: 2010Q2

REPORT INFORMATION
  Report Type: 
  Country: None (occurrence: None)
  Receive Date: 20100415
  Receipt Date: 20100405
  Transmission Date: 20101027
  Serious: Yes (Life-Threatening, Other)
  Sender: FDA-Public Use
  Company Number: GB-GENENTECH-300282

PATIENT

DRUGS (1)
  1. RITUXIMAB [Suspect]
     Indication: NEPHROTIC SYNDROME
     Dosage: UNK
     Route: 042

REACTIONS (18)
  - ABDOMINAL PAIN [None]
  - AGRANULOCYTOSIS [None]
  - ALOPECIA [None]
  - ANAPHYLACTIC REACTION [None]
  - BRONCHOSPASM [None]
  - CARDIOMYOPATHY [None]
  - COLITIS [None]
  - DIARRHOEA [None]
  - GLOMERULAR FILTRATION RATE DECREASED [None]
  - HYPERTENSION [None]
  - HYPOGAMMAGLOBULINAEMIA [None]
  - PNEUMONIA [None]
  - PYREXIA [None]
  - RASH [None]
  - RENAL FAILURE [None]
  - SEPSIS [None]
  - TACHYCARDIA [None]
  - VOMITING [None]
